FAERS Safety Report 25628051 (Version 1)
Quarter: 2025Q3

REPORT INFORMATION
  Report Type: Spontaneous
  Country: US (occurrence: None)
  Receive Date: 20250731
  Receipt Date: 20250731
  Transmission Date: 20251021
  Serious: Yes (Disabling)
  Sender: FDA-CTU
  Company Number: None

PATIENT
  Age: 60 Year
  Sex: Male
  Weight: 83.91 kg

DRUGS (2)
  1. RECLAST [Suspect]
     Active Substance: ZOLEDRONIC ACID
     Indication: Osteoporosis
     Route: 042
     Dates: start: 20250624
  2. RECLAST [Suspect]
     Active Substance: ZOLEDRONIC ACID
     Indication: Androgens abnormal

REACTIONS (5)
  - Eye swelling [None]
  - Blindness unilateral [None]
  - Periorbital inflammation [None]
  - Infusion related reaction [None]
  - Colour blindness [None]

NARRATIVE: CASE EVENT DATE: 20250704
